FAERS Safety Report 24782527 (Version 2)
Quarter: 2025Q1

REPORT INFORMATION
  Report Type: Spontaneous
  Country: FR (occurrence: FR)
  Receive Date: 20241227
  Receipt Date: 20250108
  Transmission Date: 20250408
  Serious: Yes (Life-Threatening, Hospitalization, Other)
  Sender: NOVARTIS
  Company Number: FR-SANDOZ-SDZ2024FR105283

PATIENT
  Age: 52 Year
  Sex: Female

DRUGS (3)
  1. CARBAMAZEPINE [Suspect]
     Active Substance: CARBAMAZEPINE
     Indication: Epilepsy
     Dosage: 400 MG, QD (8 MG/DAY)
     Route: 065
  2. PERAMPANEL [Suspect]
     Active Substance: PERAMPANEL
     Indication: Epilepsy
     Dosage: 8 MG, QD
     Route: 065
  3. CENOBAMATE [Suspect]
     Active Substance: CENOBAMATE
     Indication: Epilepsy
     Dosage: 100 MG, QD
     Route: 065

REACTIONS (6)
  - Encephalopathy [Unknown]
  - Coma [Recovered/Resolved]
  - Anticholinergic syndrome [Unknown]
  - Toxicity to various agents [Recovered/Resolved]
  - Overdose [Unknown]
  - Seizure [Recovered/Resolved]
